FAERS Safety Report 4960736-0 (Version None)
Quarter: 2006Q1

REPORT INFORMATION
  Report Type: 
  Country: None (occurrence: None)
  Receive Date: 20060329
  Receipt Date: 20060316
  Transmission Date: 20060701
  Serious: Yes (Hospitalization, Other)
  Sender: FDA-Public Use
  Company Number: 2006030561

PATIENT
  Age: 87 Year
  Sex: Male
  Weight: 51 kg

DRUGS (10)
  1. AZITHROMYCIN [Suspect]
     Indication: ILL-DEFINED DISORDER
     Dosage: 500 MG (2 IN 1 D), ORAL
     Route: 048
     Dates: start: 20051201, end: 20051231
  2. SPIRIVA [Suspect]
     Indication: ILL-DEFINED DISORDER
     Dates: start: 20051214, end: 20060101
  3. TERSIGAN OXITROPIUM BROMIDE) [Concomitant]
  4. SPIROPENT (CLENBUTEROL HYDROCHLORIDE) [Concomitant]
  5. UNIPHYL [Concomitant]
  6. MONTELUKAST SODIUM (MONTELUKAST SODIUM) [Concomitant]
  7. FLUTIDE (FLUTICASONE PROPIONATE) [Concomitant]
  8. PROCATEROL HCL [Concomitant]
  9. INTAL [Concomitant]
  10. PENMALIN (PIPERACILLIN SODIUM) [Concomitant]

REACTIONS (7)
  - BRONCHITIS [None]
  - DISEASE RECURRENCE [None]
  - GRANULOCYTE COUNT DECREASED [None]
  - NEUTROPENIA [None]
  - NEUTROPHIL PERCENTAGE INCREASED [None]
  - WHITE BLOOD CELL COUNT DECREASED [None]
  - WHITE BLOOD CELL COUNT INCREASED [None]
